FAERS Safety Report 8969634 (Version 3)
Quarter: 2013Q1

REPORT INFORMATION
  Report Type: Spontaneous
  Country: SI (occurrence: SI)
  Receive Date: 20121218
  Receipt Date: 20130109
  Transmission Date: 20140127
  Serious: Yes (Other)
  Sender: FDA-Public Use
  Company Number: SI-AMGEN-SVNSP2012080341

PATIENT
  Age: 55 Year
  Sex: Male
  Weight: 105 kg

DRUGS (2)
  1. ENBREL [Suspect]
     Indication: PSORIASIS
     Dosage: 50 MG, WEEKLY
     Route: 058
     Dates: start: 200904, end: 201105
  2. RAPTIVA [Concomitant]
     Indication: PSORIASIS
     Dosage: UNK
     Dates: start: 200803, end: 200902

REACTIONS (1)
  - Prostate cancer [Recovered/Resolved]
